FAERS Safety Report 7465528-9 (Version None)
Quarter: 2011Q2

REPORT INFORMATION
  Report Type: 
  Country: None (occurrence: None)
  Receive Date: 20110428
  Receipt Date: 20110418
  Transmission Date: 20111010
  Serious: Yes (Hospitalization)
  Sender: FDA-Public Use
  Company Number: TPA2011A01683

PATIENT
  Sex: Female

DRUGS (1)
  1. LANSOPRAZOLE [Suspect]
     Indication: GASTROOESOPHAGEAL REFLUX DISEASE
     Dosage: PER ORAL
     Route: 048

REACTIONS (1)
  - OESOPHAGEAL DILATATION [None]
